FAERS Safety Report 25684206 (Version 1)
Quarter: 2025Q3

REPORT INFORMATION
  Report Type: Spontaneous
  Country: US (occurrence: US)
  Receive Date: 20250815
  Receipt Date: 20250815
  Transmission Date: 20251021
  Serious: No
  Sender: ELI LILLY AND COMPANY
  Company Number: US-ELI_LILLY_AND_COMPANY-US202508007194

PATIENT
  Age: 73 Year
  Sex: Female

DRUGS (22)
  1. ZEPBOUND [Suspect]
     Active Substance: TIRZEPATIDE
     Indication: Weight control
     Dosage: 12.5 MG, WEEKLY (1/W)
     Route: 058
     Dates: start: 20241216
  2. ZEPBOUND [Suspect]
     Active Substance: TIRZEPATIDE
     Indication: Weight control
     Dosage: 12.5 MG, WEEKLY (1/W)
     Route: 058
     Dates: start: 20241216
  3. ZEPBOUND [Suspect]
     Active Substance: TIRZEPATIDE
     Indication: Weight control
     Dosage: 12.5 MG, WEEKLY (1/W)
     Route: 058
     Dates: start: 20241216
  4. ZEPBOUND [Suspect]
     Active Substance: TIRZEPATIDE
     Indication: Weight control
     Dosage: 12.5 MG, WEEKLY (1/W)
     Route: 058
     Dates: start: 20241216
  5. ZEPBOUND [Suspect]
     Active Substance: TIRZEPATIDE
     Indication: Sleep apnoea syndrome
  6. ZEPBOUND [Suspect]
     Active Substance: TIRZEPATIDE
     Indication: Sleep apnoea syndrome
  7. ZEPBOUND [Suspect]
     Active Substance: TIRZEPATIDE
     Indication: Sleep apnoea syndrome
  8. ZEPBOUND [Suspect]
     Active Substance: TIRZEPATIDE
     Indication: Sleep apnoea syndrome
  9. ZEPBOUND [Suspect]
     Active Substance: TIRZEPATIDE
     Indication: Metabolic dysfunction-associated steatohepatitis
  10. ZEPBOUND [Suspect]
     Active Substance: TIRZEPATIDE
     Indication: Metabolic dysfunction-associated steatohepatitis
  11. ZEPBOUND [Suspect]
     Active Substance: TIRZEPATIDE
     Indication: Metabolic dysfunction-associated steatohepatitis
  12. ZEPBOUND [Suspect]
     Active Substance: TIRZEPATIDE
     Indication: Metabolic dysfunction-associated steatohepatitis
  13. LEVOXYL [Concomitant]
     Active Substance: LEVOTHYROXINE SODIUM
     Indication: Autoimmune thyroiditis
     Route: 065
     Dates: start: 19810101
  14. LEVOXYL [Concomitant]
     Active Substance: LEVOTHYROXINE SODIUM
     Route: 065
  15. CREON [Concomitant]
     Active Substance: PANCRELIPASE AMYLASE\PANCRELIPASE LIPASE\PANCRELIPASE PROTEASE
     Indication: Lipase decreased
     Route: 065
     Dates: start: 20250116
  16. VITAMIN D3 [Concomitant]
     Active Substance: CHOLECALCIFEROL
     Indication: Vitamin D decreased
     Route: 065
  17. XARELTO [Concomitant]
     Active Substance: RIVAROXABAN
     Indication: Factor V Leiden mutation
     Dosage: 10 MG, DAILY
     Route: 065
     Dates: start: 20170103
  18. POTASSIUM CITRATE [Concomitant]
     Active Substance: POTASSIUM CITRATE
     Indication: Nephrolithiasis
     Dosage: 15 MEQ, DAILY
     Route: 065
     Dates: start: 20200622
  19. ESTRADIOL [Concomitant]
     Active Substance: ESTRADIOL
     Indication: Cystitis interstitial
     Route: 065
     Dates: start: 20180101
  20. REZDIFFRA [Concomitant]
     Active Substance: RESMETIROM
     Indication: Metabolic dysfunction-associated steatohepatitis
     Dosage: 100 MG, DAILY
     Route: 065
     Dates: start: 20250411
  21. ESCITALOPRAM [Concomitant]
     Active Substance: ESCITALOPRAM OXALATE
     Indication: Hormone replacement therapy
     Route: 065
     Dates: start: 20200911
  22. ESCITALOPRAM [Concomitant]
     Active Substance: ESCITALOPRAM OXALATE
     Indication: Post-traumatic stress disorder

REACTIONS (9)
  - Blood thyroid stimulating hormone decreased [Not Recovered/Not Resolved]
  - Vitamin B12 decreased [Not Recovered/Not Resolved]
  - Dehydration [Unknown]
  - Blood electrolytes decreased [Unknown]
  - Blood uric acid increased [Not Recovered/Not Resolved]
  - Lipase increased [Not Recovered/Not Resolved]
  - Hypotension [Not Recovered/Not Resolved]
  - Alopecia [Not Recovered/Not Resolved]
  - Fatigue [Not Recovered/Not Resolved]

NARRATIVE: CASE EVENT DATE: 20250429
